FAERS Safety Report 7676533-1 (Version None)
Quarter: 2011Q3

REPORT INFORMATION
  Report Type: 
  Country: None (occurrence: None)
  Receive Date: 20110811
  Receipt Date: 20110801
  Transmission Date: 20111222
  Serious: Yes (Hospitalization)
  Sender: FDA-Public Use
  Company Number: US-JNJFOC-20100700178

PATIENT
  Sex: Female
  Weight: 21 kg

DRUGS (7)
  1. REMICADE [Suspect]
     Indication: INFLAMMATORY BOWEL DISEASE
     Dosage: TOTAL 6 DOSES
     Route: 042
     Dates: start: 20100315
  2. AMPICILLIN AND SULBACTAM [Concomitant]
     Route: 065
  3. REMICADE [Suspect]
     Indication: CROHN'S DISEASE
     Dosage: TOTAL 6 DOSES
     Route: 042
     Dates: start: 20100315
  4. REMICADE [Suspect]
     Route: 042
     Dates: start: 20091031
  5. REMICADE [Suspect]
     Route: 042
     Dates: start: 20091031
  6. ZANTAC [Concomitant]
     Indication: ILL-DEFINED DISORDER
     Route: 042
  7. PIPERACILLIN [Concomitant]
     Route: 042

REACTIONS (1)
  - COLECTOMY [None]
